FAERS Safety Report 7804312-0 (Version None)
Quarter: 2011Q4

REPORT INFORMATION
  Report Type: 
  Country: None (occurrence: None)
  Receive Date: 20111010
  Receipt Date: 20110928
  Transmission Date: 20120403
  Serious: Yes (Hospitalization)
  Sender: FDA-Public Use
  Company Number: IT-BRISTOL-MYERS SQUIBB COMPANY-16102329

PATIENT
  Age: 63 Year
  Sex: Female

DRUGS (3)
  1. DEFLAMON [Concomitant]
     Dates: start: 20110916, end: 20110926
  2. PIPERACILLIN AND TAZOBACTAM [Concomitant]
     Dates: start: 20110916, end: 20110926
  3. IPILIMUMAB [Suspect]
     Indication: MALIGNANT MELANOMA
     Dosage: DOSE:1240MG.
     Dates: start: 20110901

REACTIONS (2)
  - DIARRHOEA [None]
  - GASTROINTESTINAL INFECTION [None]
